FAERS Safety Report 4593913-1 (Version None)
Quarter: 2005Q1

REPORT INFORMATION
  Report Type: 
  Country: None (occurrence: None)
  Receive Date: 20050217
  Receipt Date: 20050209
  Transmission Date: 20050727
  Serious: Yes (Other)
  Sender: FDA-Public Use
  Company Number: HQWYE623022NOV04

PATIENT
  Age: 28 Year
  Sex: Male

DRUGS (6)
  1. BENEFIX [Suspect]
     Indication: FACTOR IX DEFICIENCY
     Dosage: 10,000 AND 5, 000 UNITS (DOSAGE DETERMINED BY 1.2 TIMES TARGEGT PLASMA LEVELS) INTRAVENOUS
     Route: 042
     Dates: start: 20040901, end: 20040901
  2. BENEFIX [Suspect]
     Indication: PROPHYLAXIS
     Dosage: 10,000 AND 5, 000 UNITS (DOSAGE DETERMINED BY 1.2 TIMES TARGEGT PLASMA LEVELS) INTRAVENOUS
     Route: 042
     Dates: start: 20040901, end: 20040901
  3. BENEFIX [Suspect]
  4. CLOXACILLIN (CLOXACILIN) [Suspect]
     Indication: SUBCUTANEOUS ABSCESS
     Dosage: 500 MG ORAL
     Route: 048
     Dates: start: 20040901
  5. BRICANYL [Concomitant]
  6. PULMICORT [Concomitant]

REACTIONS (3)
  - ANGIONEUROTIC OEDEMA [None]
  - DRUG HYPERSENSITIVITY [None]
  - PARAESTHESIA ORAL [None]
